FAERS Safety Report 21393820 (Version 1)
Quarter: 2022Q3

REPORT INFORMATION
  Report Type: Report from Study
  Country: US (occurrence: US)
  Receive Date: 20220930
  Receipt Date: 20220930
  Transmission Date: 20221026
  Serious: Yes (Death, Other)
  Sender: FDA-Public Use
  Company Number: US-ACADIA PHARMACEUTICALS INC.-ACA-2022-PIM-003046

PATIENT
  Sex: Female

DRUGS (16)
  1. NUPLAZID [Suspect]
     Active Substance: PIMAVANSERIN TARTRATE
     Indication: Hallucination
     Dosage: 34 MILLIGRAM, QD
     Route: 048
     Dates: start: 202103, end: 20220821
  2. NUPLAZID [Suspect]
     Active Substance: PIMAVANSERIN TARTRATE
     Indication: Delusion
  3. NUPLAZID [Suspect]
     Active Substance: PIMAVANSERIN TARTRATE
     Indication: Dementia with Lewy bodies
  4. BOSULIF [Concomitant]
     Active Substance: BOSUTINIB MONOHYDRATE
  5. BUPROPION [Concomitant]
     Active Substance: BUPROPION
  6. CLONAZEPAM [Concomitant]
     Active Substance: CLONAZEPAM
  7. CLOZAPINE [Concomitant]
     Active Substance: CLOZAPINE
  8. DROXIDOPA [Concomitant]
     Active Substance: DROXIDOPA
  9. ZETIA [Concomitant]
     Active Substance: EZETIMIBE
  10. FLUDROCORTISONE [Concomitant]
     Active Substance: FLUDROCORTISONE
  11. HORIZANT [Concomitant]
     Active Substance: GABAPENTIN ENACARBIL
  12. MIDODRINE [Concomitant]
     Active Substance: MIDODRINE
  13. NYSTOP [Concomitant]
     Active Substance: NYSTATIN
  14. PRAVASTATIN [Concomitant]
     Active Substance: PRAVASTATIN
  15. QUETIAPINE [Concomitant]
     Active Substance: QUETIAPINE
  16. RIVASTIGMINE [Concomitant]
     Active Substance: RIVASTIGMINE

REACTIONS (1)
  - Parkinson^s disease [Recovered/Resolved]
